FAERS Safety Report 7355986-2 (Version None)
Quarter: 2011Q1

REPORT INFORMATION
  Report Type: 
  Country: None (occurrence: None)
  Receive Date: 20110316
  Receipt Date: 20110309
  Transmission Date: 20110831
  Serious: No
  Sender: FDA-Public Use
  Company Number: US-ABBOTT-11P-163-0711146-00

PATIENT
  Sex: Female
  Weight: 67.646 kg

DRUGS (8)
  1. METOPROLOL XR [Concomitant]
     Indication: HYPERTENSION
  2. FISH OIL [Concomitant]
     Indication: PRODUCT USED FOR UNKNOWN INDICATION
     Route: 048
  3. CRESTOR [Suspect]
     Indication: BLOOD CHOLESTEROL INCREASED
     Route: 048
  4. TRILIPIX [Suspect]
     Indication: BLOOD TRIGLYCERIDES INCREASED
     Dosage: 1 IN 1 MORNING
     Route: 048
     Dates: start: 20101201, end: 20110309
  5. UNKNOWN VITAMIN [Concomitant]
     Indication: ALOPECIA
     Route: 048
  6. UNKNOWN VITAMIN [Concomitant]
     Route: 048
  7. MULTI-VITAMIN [Concomitant]
     Indication: PRODUCT USED FOR UNKNOWN INDICATION
  8. BIOTIN [Concomitant]
     Indication: PRODUCT USED FOR UNKNOWN INDICATION

REACTIONS (5)
  - TENDERNESS [None]
  - HEADACHE [None]
  - DYSPEPSIA [None]
  - NAUSEA [None]
  - CHEST PAIN [None]
